FAERS Safety Report 4591932-2 (Version None)
Quarter: 2005Q1

REPORT INFORMATION
  Report Type: 
  Country: None (occurrence: None)
  Receive Date: 20050222
  Receipt Date: 20050214
  Transmission Date: 20050727
  Serious: Yes (Life-Threatening, Hospitalization)
  Sender: FDA-Public Use
  Company Number: 211719

PATIENT
  Age: 38 Year
  Sex: Male
  Weight: 126.5 kg

DRUGS (10)
  1. XOLAIR [Suspect]
     Indication: ASTHMA
     Dosage: 375 MG, Q2W, SUBCUTANEOUS
     Route: 058
     Dates: start: 20040223
  2. ADVAIR (FLUTICASONE PROPIONATE, SALMETEROL XINAFOATE) [Concomitant]
  3. PREDNISONE [Concomitant]
  4. ACCOLATE [Concomitant]
  5. ZYRTEC [Concomitant]
  6. PREVACID [Concomitant]
  7. GLUCOPHAGE [Concomitant]
  8. GLUCOTROL [Concomitant]
  9. ALBUTEROL (ALBUTEROL SULFATE, ALBUTEROL) [Concomitant]
  10. ACTOS [Concomitant]

REACTIONS (1)
  - MENINGITIS VIRAL [None]
